FAERS Safety Report 4591341-6 (Version None)
Quarter: 2005Q1

REPORT INFORMATION
  Report Type: 
  Country: None (occurrence: None)
  Receive Date: 20050223
  Receipt Date: 20050223
  Transmission Date: 20050727
  Serious: Yes (Death)
  Sender: FDA-Public Use
  Company Number: None

PATIENT
  Sex: Female

DRUGS (3)
  1. FLUDARABINE [Suspect]
     Indication: UNRELATED DONOR BONE MARROW TRANSPLANTATION THERAPY
     Dosage: 25MG DAILY
     Dates: start: 20030418, end: 20030422
  2. MELPHLAN 290MG [Suspect]
     Indication: STEM CELL TRANSPLANT
     Dosage: 290 MG DAILY
     Dates: start: 20030423
  3. CAMPATH [Suspect]
     Indication: STEM CELL TRANSPLANT
     Dosage: 20MG DAILY
     Dates: start: 20030418, end: 20030422

REACTIONS (1)
  - ACUTE RESPIRATORY DISTRESS SYNDROME [None]
